FAERS Safety Report 4815725-3 (Version None)
Quarter: 2005Q4

REPORT INFORMATION
  Report Type: 
  Country: None (occurrence: None)
  Receive Date: 20051027
  Receipt Date: 20051019
  Transmission Date: 20060501
  Serious: Yes (Disabling)
  Sender: FDA-Public Use
  Company Number: EM2005-0512

PATIENT
  Age: 32 Year
  Sex: Female

DRUGS (8)
  1. MACROLIN [Suspect]
     Indication: HIV INFECTION
     Dates: start: 20050414, end: 20050418
  2. MACROLIN [Suspect]
     Indication: HIV INFECTION
     Dates: start: 20050606, end: 20050610
  3. NORVIR [Concomitant]
  4. VIREAD [Concomitant]
  5. 3TC (LAMIVUDINE) [Concomitant]
  6. REYATAZ [Concomitant]
  7. EPIVIR [Concomitant]
  8. RITONAVIR (RITONAVIR) [Concomitant]

REACTIONS (7)
  - CHILLS [None]
  - FATIGUE [None]
  - HEADACHE [None]
  - INSOMNIA [None]
  - MUSCULOSKELETAL STIFFNESS [None]
  - MYALGIA [None]
  - PYREXIA [None]
